FAERS Safety Report 8822064 (Version 2)
Quarter: 2012Q4

REPORT INFORMATION
  Report Type: 
  Country: DE (occurrence: DE)
  Receive Date: 20121003
  Receipt Date: 20121012
  Transmission Date: 20130627
  Serious: Yes (Hospitalization)
  Sender: FDA-Public Use
  Company Number: DE-AMGEN-DEUSP2012061124

PATIENT
  Sex: Male
  Weight: 64 kg

DRUGS (3)
  1. NPLATE [Suspect]
     Indication: PRODUCT USED FOR UNKNOWN INDICATION
     Dosage: 250 mug, qwk
     Dates: start: 201012
  2. PREDNISOLONE [Suspect]
     Indication: THERAPY REGIMEN CHANGED
     Dosage: 7.5 mg, qd
     Route: 048
     Dates: start: 199811, end: 20121005
  3. PRIVIGEN /00025201/ [Suspect]
     Dosage: 30 g, q4wk
     Route: 042
     Dates: start: 199702, end: 20120914

REACTIONS (4)
  - Platelet count decreased [Recovered/Resolved]
  - Platelet count increased [Not Recovered/Not Resolved]
  - Faeces discoloured [Unknown]
  - Haemorrhage [Unknown]
